FAERS Safety Report 19999618 (Version 3)
Quarter: 2022Q1

REPORT INFORMATION
  Report Type: Spontaneous
  Country: DE (occurrence: DE)
  Receive Date: 20211026
  Receipt Date: 20220125
  Transmission Date: 20220424
  Serious: Yes (Hospitalization, Other)
  Sender: FDA-Public Use
  Company Number: DE-BRISTOL-MYERS SQUIBB COMPANY-BMS-2021-109038

PATIENT
  Sex: Male

DRUGS (3)
  1. OPDIVO [Suspect]
     Active Substance: NIVOLUMAB
     Indication: Malignant melanoma stage IV
     Dosage: 480 MILLIGRAM, Q4WK
     Route: 065
     Dates: start: 201901, end: 202109
  2. YERVOY [Suspect]
     Active Substance: IPILIMUMAB
     Indication: Malignant melanoma stage IV
     Dosage: 3 MILLIGRAM/KILOGRAM
     Route: 065
     Dates: start: 201901, end: 202109
  3. ZOMETA [Concomitant]
     Active Substance: ZOLEDRONIC ACID
     Indication: Bone densitometry
     Route: 065

REACTIONS (5)
  - Blepharitis [Unknown]
  - Conjunctivitis [Unknown]
  - Sjogren^s syndrome [Unknown]
  - Glaucoma [Unknown]
  - Corneal defect [Unknown]

NARRATIVE: CASE EVENT DATE: 20210801
